FAERS Safety Report 8606856 (Version 3)
Quarter: 2013Q4

REPORT INFORMATION
  Report Type: Report from Study
  Country: US (occurrence: US)
  Receive Date: 20120611
  Receipt Date: 20131111
  Transmission Date: 20140711
  Serious: Yes (Hospitalization)
  Sender: FDA-Public Use
  Company Number: US-BIOGENIDEC-2012BI019602

PATIENT
  Age: 55 Year
  Sex: Female
  Weight: 70 kg

DRUGS (16)
  1. TYSABRI [Suspect]
     Indication: MULTIPLE SCLEROSIS
     Route: 042
     Dates: start: 20081104, end: 20130207
  2. TYSABRI [Suspect]
     Indication: MULTIPLE SCLEROSIS
     Route: 042
     Dates: start: 20130410
  3. BACLOFEN [Concomitant]
     Route: 048
  4. BOTOX [Concomitant]
  5. CRANBERRY [Concomitant]
     Route: 048
  6. COUMADIN [Concomitant]
     Route: 042
  7. COUMADIN [Concomitant]
     Route: 042
  8. CYMBALTA [Concomitant]
     Route: 048
  9. LASIX [Concomitant]
     Route: 048
  10. PROBIOTIC [Concomitant]
     Route: 048
  11. PROVIGIL [Concomitant]
     Route: 048
     Dates: start: 20111220
  12. VICODIN [Concomitant]
     Indication: PAIN
     Route: 048
  13. VICODIN [Concomitant]
     Indication: PAIN
     Route: 048
  14. VITAMIN D3 [Concomitant]
  15. VOLTAREN [Concomitant]
  16. ACIDOPHILUS [Concomitant]
     Route: 048

REACTIONS (1)
  - Spinal compression fracture [Recovered/Resolved with Sequelae]
